FAERS Safety Report 17107372 (Version 1)
Quarter: 2019Q4

REPORT INFORMATION
  Report Type: Spontaneous
  Country: CL (occurrence: CL)
  Receive Date: 20191204
  Receipt Date: 20191204
  Transmission Date: 20200122
  Serious: Yes (Other)
  Sender: FDA-Public Use
  Company Number: CL-EMD SERONO-9132257

PATIENT
  Sex: Female

DRUGS (5)
  1. CETROTIDE [Suspect]
     Active Substance: CETRORELIX ACETATE
     Indication: PRODUCT USED FOR UNKNOWN INDICATION
     Dosage: CETROTIDE VIAL 250 MCG, ACCORDING TO PURCHASE REGISTRATION OF 06 AUG 2019.
  2. CRINONE [Suspect]
     Active Substance: PROGESTERONE
     Indication: PRODUCT USED FOR UNKNOWN INDICATION
     Dosage: ACCORDING TO PURCHASE REGISTRATION OF 06 AUG 2019.
  3. GONAL-F [Suspect]
     Active Substance: FOLLITROPIN
     Dosage: GONAL-F PEN 450 (UNIT UNSPECIFIED),ACCORDING TO PURCHASE REGISTRATION OF 06 AUG 2019.
  4. OVIDREL [Suspect]
     Active Substance: CHORIOGONADOTROPIN ALFA
     Indication: INFERTILITY
     Dosage: OVIDREL SYR 250 MCG, ACCORDING TO PURCHASE REGISTRATION OF 06 AUG 2019.
  5. GONAL-F [Suspect]
     Active Substance: FOLLITROPIN
     Indication: PRODUCT USED FOR UNKNOWN INDICATION
     Dosage: GONAL-F PEN 900 (UNIT UNSPECIFIED), ACCORDING TO PURCHASE REGISTRATION OF 06 AUG 2019.

REACTIONS (2)
  - Haemorrhage in pregnancy [Unknown]
  - Maternal exposure during pregnancy [Not Recovered/Not Resolved]

NARRATIVE: CASE EVENT DATE: 2019
